FAERS Safety Report 11250632 (Version 1)
Quarter: 2015Q3

REPORT INFORMATION
  Report Type: Spontaneous
  Country: US (occurrence: US)
  Receive Date: 20150708
  Receipt Date: 20150708
  Transmission Date: 20151125
  Serious: Yes (Death)
  Sender: FDA-Public Use
  Company Number: US-ELI_LILLY_AND_COMPANY-US201012003524

PATIENT
  Sex: Male

DRUGS (4)
  1. FOLIC ACID. [Concomitant]
     Active Substance: FOLIC ACID
  2. CAMPTOSAR [Concomitant]
     Active Substance: IRINOTECAN HYDROCHLORIDE
  3. ALIMTA [Suspect]
     Active Substance: PEMETREXED DISODIUM
     Indication: URETERIC CANCER
     Dosage: 1000 MG, UNK
     Dates: start: 20100125, end: 20100215
  4. VITAMIN B12 [Concomitant]
     Active Substance: CYANOCOBALAMIN

REACTIONS (2)
  - Malignant neoplasm progression [Fatal]
  - Off label use [Recovered/Resolved]
